FAERS Safety Report 6202774-6 (Version None)
Quarter: 2009Q2

REPORT INFORMATION
  Report Type: 
  Country: None (occurrence: None)
  Receive Date: 20090526
  Receipt Date: 20090518
  Transmission Date: 20091009
  Serious: Yes (Hospitalization)
  Sender: FDA-Public Use
  Company Number: US-GENENTECH-283330

PATIENT
  Sex: Male
  Weight: 92.73 kg

DRUGS (14)
  1. BEVACIZUMAB [Suspect]
     Indication: HEAD AND NECK CANCER
     Dosage: UNK
     Route: 042
     Dates: start: 20090414
  2. CETUXIMAB [Suspect]
     Indication: HEAD AND NECK CANCER
     Dosage: UNK
     Route: 042
     Dates: start: 20090407
  3. ALIMTA [Suspect]
     Indication: HEAD AND NECK CANCER
     Dosage: UNK
     Route: 042
     Dates: start: 20090414
  4. ROXICET [Concomitant]
     Indication: DRUG USE FOR UNKNOWN INDICATION
  5. CIPRO [Concomitant]
     Indication: DRUG USE FOR UNKNOWN INDICATION
  6. DECADRON [Concomitant]
     Indication: DRUG USE FOR UNKNOWN INDICATION
  7. FENTANYL [Concomitant]
     Indication: DRUG USE FOR UNKNOWN INDICATION
  8. FOLATE [Concomitant]
     Indication: DRUG USE FOR UNKNOWN INDICATION
  9. HYZAAR [Concomitant]
     Indication: DRUG USE FOR UNKNOWN INDICATION
  10. ATIVAN [Concomitant]
     Indication: DRUG USE FOR UNKNOWN INDICATION
  11. MINOCYCLINE HCL [Concomitant]
     Indication: DRUG USE FOR UNKNOWN INDICATION
  12. NIACIN [Concomitant]
     Indication: DRUG USE FOR UNKNOWN INDICATION
  13. POTASSIUM CHLORIDE [Concomitant]
     Indication: DRUG USE FOR UNKNOWN INDICATION
  14. AMBIEN [Concomitant]
     Indication: DRUG USE FOR UNKNOWN INDICATION

REACTIONS (3)
  - CONFUSIONAL STATE [None]
  - DEHYDRATION [None]
  - MUCOSAL INFLAMMATION [None]
